FAERS Safety Report 12874234 (Version 2)
Quarter: 2016Q4

REPORT INFORMATION
  Report Type: Spontaneous
  Country: FR (occurrence: FR)
  Receive Date: 20161021
  Receipt Date: 20161227
  Transmission Date: 20170207
  Serious: Yes (Hospitalization)
  Sender: FDA-Public Use
  Company Number: FR-BAYER-2016-197706

PATIENT
  Age: 38 Year
  Sex: Male

DRUGS (12)
  1. CODOLIPRANE [Suspect]
     Active Substance: ACETAMINOPHEN\CODEINE PHOSPHATE
     Dosage: UNK
     Route: 048
     Dates: start: 2014, end: 20160919
  2. CORTANCYL [Suspect]
     Active Substance: PREDNISONE
     Dosage: 80 MG, QD
     Route: 048
     Dates: start: 20160921
  3. OMEPRAZOLE. [Suspect]
     Active Substance: OMEPRAZOLE
     Indication: GASTROOESOPHAGEAL REFLUX DISEASE
     Dosage: 40 MG, QD
     Route: 048
     Dates: start: 201608
  4. IPILIMUMAB [Suspect]
     Active Substance: IPILIMUMAB
     Indication: MALIGNANT MELANOMA
     Dosage: 260 MG, Q3WK
     Route: 042
     Dates: start: 20160721
  5. CONTRAMAL [Suspect]
     Active Substance: TRAMADOL HYDROCHLORIDE
     Dosage: 50 MG, QD
     Route: 048
     Dates: start: 201609
  6. TRAMADOL. [Suspect]
     Active Substance: TRAMADOL
     Dosage: 50 MG, QD
  7. AUGMENTIN [Suspect]
     Active Substance: AMOXICILLIN\CLAVULANATE POTASSIUM
     Indication: PYREXIA
     Dosage: UNK
     Route: 048
     Dates: start: 20160916
  8. OMEPRAZOLE BAYER 20MG [Concomitant]
     Dosage: 20 MG, QD
     Route: 048
     Dates: start: 201403
  9. OTHER ANTINEOPLASTIC AGENTS [Suspect]
     Active Substance: UNSPECIFIED INGREDIENT
     Indication: MALIGNANT MELANOMA
     Dosage: UNK
     Route: 042
     Dates: start: 20150128
  10. CIFLOX [Suspect]
     Active Substance: CIPROFLOXACIN
     Indication: PYREXIA
     Dosage: UNK
     Route: 048
     Dates: start: 20160916
  11. ACUPAN [Suspect]
     Active Substance: NEFOPAM HYDROCHLORIDE
     Indication: PAIN
     Dosage: UNK
     Dates: start: 201609
  12. TRAMADOL. [Suspect]
     Active Substance: TRAMADOL
     Dosage: 100 MG, UNK

REACTIONS (2)
  - Hepatocellular injury [Recovering/Resolving]
  - Lymphocytic hypophysitis [Unknown]

NARRATIVE: CASE EVENT DATE: 201609
